FAERS Safety Report 7802738-2 (Version None)
Quarter: 2011Q4

REPORT INFORMATION
  Report Type: 
  Country: None (occurrence: None)
  Receive Date: 20111005
  Receipt Date: 20110921
  Transmission Date: 20120403
  Serious: Yes (Other)
  Sender: FDA-Public Use
  Company Number: JP-2011-11559

PATIENT
  Age: 60 Year

DRUGS (1)
  1. PLETAL [Suspect]
     Indication: CEREBRAL INFARCTION
     Dosage: ORAL
     Route: 048

REACTIONS (1)
  - THALAMUS HAEMORRHAGE [None]
